FAERS Safety Report 7904620-9 (Version None)
Quarter: 2011Q4

REPORT INFORMATION
  Report Type: 
  Country: None (occurrence: None)
  Receive Date: 20111109
  Receipt Date: 20111102
  Transmission Date: 20120403
  Serious: Yes (Other)
  Sender: FDA-Public Use
  Company Number: US-GLAXOSMITHKLINE-A0930787A

PATIENT
  Age: 84 Year
  Sex: Female

DRUGS (3)
  1. DIABETES MEDICATION [Concomitant]
  2. HIGH BLOOD PRESSURE PILL [Concomitant]
  3. ADVAIR DISKUS 100/50 [Suspect]
     Indication: CHRONIC OBSTRUCTIVE PULMONARY DISEASE
     Dosage: 1PUFF TWICE PER DAY
     Route: 055

REACTIONS (4)
  - SINUSITIS [None]
  - PYREXIA [None]
  - ASTHMA [None]
  - DYSPHONIA [None]
